FAERS Safety Report 10707029 (Version 1)
Quarter: 2015Q1

REPORT INFORMATION
  Report Type: Spontaneous
  Country: US (occurrence: None)
  Receive Date: 20150112
  Receipt Date: 20150112
  Transmission Date: 20150721
  Serious: No
  Sender: FDA-Public Use
  Company Number: None

PATIENT
  Age: 51 Year
  Sex: Female
  Weight: 65.77 kg

DRUGS (1)
  1. METHYLPHENIDATE ER [Suspect]
     Active Substance: METHYLPHENIDATE
     Indication: ATTENTION DEFICIT/HYPERACTIVITY DISORDER
     Dosage: 1  ONCE DAILY TAKEN BY MOUTH
     Route: 048
     Dates: start: 2014

REACTIONS (8)
  - Stress [None]
  - Product substitution issue [None]
  - Panic attack [None]
  - Feeling of despair [None]
  - Drug ineffective [None]
  - Anxiety [None]
  - Product quality issue [None]
  - Depression [None]

NARRATIVE: CASE EVENT DATE: 20140901
